FAERS Safety Report 4647072-7 (Version None)
Quarter: 2005Q2

REPORT INFORMATION
  Report Type: 
  Country: None (occurrence: None)
  Receive Date: 20050331
  Receipt Date: 20050131
  Transmission Date: 20051028
  Serious: No
  Sender: FDA-Public Use
  Company Number: 05P-163-0288819-00

PATIENT
  Age: 47 Year
  Sex: Male

DRUGS (9)
  1. HUMIRA [Suspect]
     Indication: RHEUMATOID ARTHRITIS
     Dosage: 1 IN 1 WK, SUBCUTANEOUS
     Route: 058
     Dates: start: 20030601
  2. METHOTREXATE [Concomitant]
  3. LEVOTHYROXINE SODIUM [Concomitant]
  4. PREDNISONE [Concomitant]
  5. ATORVASTATIN CALCIUM [Concomitant]
  6. CLOPIDOGREL BISULFATE [Concomitant]
  7. ISOSORBIDE MONONITRATE [Concomitant]
  8. ZOLPIDEM TARTRATE [Concomitant]
  9. VICODIN [Concomitant]

REACTIONS (1)
  - BLOOD CREATINE INCREASED [None]
